FAERS Safety Report 8776355 (Version 1)
Quarter: 2012Q4

REPORT INFORMATION
  Report Type: 
  Country: DE (occurrence: DE)
  Receive Date: 20120910
  Receipt Date: 20120910
  Transmission Date: 20130627
  Serious: Yes (Other)
  Sender: FDA-Public Use
  Company Number: PHHY2012DE077716

PATIENT
  Age: 61 Year
  Sex: Female

DRUGS (1)
  1. GLIVEC [Suspect]
     Dates: start: 200601

REACTIONS (1)
  - Breast cancer [Unknown]
